FAERS Safety Report 4804327-0 (Version None)
Quarter: 2005Q4

REPORT INFORMATION
  Report Type: 
  Country: None (occurrence: None)
  Receive Date: 20051018
  Receipt Date: 20051018
  Transmission Date: 20060501
  Serious: Yes (Hospitalization)
  Sender: FDA-Public Use
  Company Number: None

PATIENT
  Sex: Male

DRUGS (3)
  1. TOPAMAX [Suspect]
     Indication: MIGRAINE
     Dosage: 9/20 25 MG PO X 1 WK; 9/2725 MG BID X 1 WK; 10/4 25 MG AM 50 MG PM
     Route: 048
     Dates: start: 20050920
  2. TOPAMAX [Suspect]
     Indication: MIGRAINE
     Dosage: 9/20 25 MG PO X 1 WK; 9/2725 MG BID X 1 WK; 10/4 25 MG AM 50 MG PM
     Route: 048
     Dates: start: 20050927
  3. TOPAMAX [Suspect]
     Indication: MIGRAINE
     Dosage: 9/20 25 MG PO X 1 WK; 9/2725 MG BID X 1 WK; 10/4 25 MG AM 50 MG PM
     Route: 048
     Dates: start: 20051004

REACTIONS (4)
  - ANXIETY [None]
  - PALPITATIONS [None]
  - TACHYCARDIA [None]
  - TACHYPNOEA [None]
